FAERS Safety Report 8719417 (Version 2)
Quarter: 2013Q4

REPORT INFORMATION
  Report Type: Spontaneous
  Country: US (occurrence: US)
  Receive Date: 20120813
  Receipt Date: 20131108
  Transmission Date: 20140711
  Serious: Yes (Disabling)
  Sender: FDA-Public Use
  Company Number: US-009507513-1208USA001182

PATIENT
  Sex: Female

DRUGS (1)
  1. NUVARING [Suspect]
     Indication: CONTRACEPTION
     Dosage: 0.120 MG/DAY OF ETONOGESTREL AND 0. 015 MG/DAY OF ETHINYL ESTRADIOL/21 DAYS
     Route: 067
     Dates: start: 2011, end: 201207

REACTIONS (1)
  - Bladder obstruction [Recovered/Resolved]
